FAERS Safety Report 7480928-9 (Version None)
Quarter: 2011Q2

REPORT INFORMATION
  Report Type: 
  Country: None (occurrence: None)
  Receive Date: 20110516
  Receipt Date: 20110509
  Transmission Date: 20111010
  Serious: Yes (Other)
  Sender: FDA-Public Use
  Company Number: US-TEVA-280926USA

PATIENT
  Sex: Male

DRUGS (1)
  1. NEFAZODONE HCL [Suspect]
     Indication: DEPRESSION
     Dosage: 400 MILLIGRAM;
     Route: 048
     Dates: start: 20100101

REACTIONS (4)
  - PANIC ATTACK [None]
  - DRUG INEFFECTIVE [None]
  - WITHDRAWAL SYNDROME [None]
  - ANXIETY [None]
